FAERS Safety Report 9922470 (Version 2)
Quarter: 2014Q1

REPORT INFORMATION
  Report Type: Spontaneous
  Country: US (occurrence: US)
  Receive Date: 20140225
  Receipt Date: 20140225
  Transmission Date: 20141002
  Serious: No
  Sender: FDA-Public Use
  Company Number: US-MYLANLABS-2013S1013691

PATIENT
  Age: 66 Year
  Sex: Male

DRUGS (2)
  1. ATENOLOL TABLETS, USP [Suspect]
     Indication: HYPERTENSION
  2. ASPIRIN [Concomitant]
     Dosage: ENTERIC COATED

REACTIONS (4)
  - Drug ineffective [Recovered/Resolved]
  - Blood pressure increased [Recovered/Resolved]
  - Ventricular extrasystoles [Recovered/Resolved]
  - Feeling jittery [Recovered/Resolved]
